FAERS Safety Report 13679921 (Version 1)
Quarter: 2017Q2

REPORT INFORMATION
  Report Type: Spontaneous
  Country: US (occurrence: US)
  Receive Date: 20170622
  Receipt Date: 20170622
  Transmission Date: 20170830
  Serious: Yes (Other)
  Sender: FDA-Public Use
  Company Number: US-ARBOR PHARMACEUTICALS, LLC-US-2017ARB000591

PATIENT

DRUGS (1)
  1. HORIZANT [Suspect]
     Active Substance: GABAPENTIN ENACARBIL
     Indication: NEUROPATHY PERIPHERAL
     Dosage: 2 DF, QD
     Dates: start: 20170221

REACTIONS (7)
  - Malaise [Unknown]
  - Gastrointestinal disorder [Unknown]
  - Arthritis [Unknown]
  - Disturbance in attention [Unknown]
  - Speech disorder [Unknown]
  - Throat irritation [Unknown]
  - Abdominal hernia [Unknown]
